FAERS Safety Report 7233634-X (Version None)
Quarter: 2011Q1

REPORT INFORMATION
  Report Type: 
  Country: None (occurrence: None)
  Receive Date: 20110119
  Receipt Date: 20110107
  Transmission Date: 20110831
  Serious: Yes (Death)
  Sender: FDA-Public Use
  Company Number: US-MERCK-1101USA00207

PATIENT
  Age: 77 Year
  Sex: Female

DRUGS (8)
  1. CHLORDIAZEPOXIDE [Suspect]
     Route: 048
  2. ZOCOR [Suspect]
     Route: 048
  3. LEVOTHYROXINE SODIUM [Suspect]
     Route: 048
  4. DOXAZOSIN MESYLATE [Suspect]
     Route: 048
  5. HYDRODIURIL [Suspect]
     Route: 048
  6. VENLAFAXINE HYDROCHLORIDE [Suspect]
     Route: 048
  7. TIAMATE [Suspect]
     Route: 048
  8. ZESTRIL [Suspect]
     Route: 048

REACTIONS (3)
  - COMPLETED SUICIDE [None]
  - CARDIO-RESPIRATORY ARREST [None]
  - TOXICITY TO VARIOUS AGENTS [None]
